FAERS Safety Report 24136351 (Version 3)
Quarter: 2025Q4

REPORT INFORMATION
  Report Type: Spontaneous
  Country: US (occurrence: US)
  Receive Date: 20240725
  Receipt Date: 20251229
  Transmission Date: 20260117
  Serious: Yes (Other)
  Sender: AMGEN
  Company Number: US-AMGEN-USASP2024140884

PATIENT
  Sex: Female

DRUGS (1)
  1. TEPEZZA [Suspect]
     Active Substance: TEPROTUMUMAB-TRBW
     Indication: Product used for unknown indication
     Dosage: UNK
     Route: 065

REACTIONS (12)
  - Neuropathy peripheral [Unknown]
  - Cataract [Unknown]
  - Diabetes mellitus [Unknown]
  - Blindness [Not Recovered/Not Resolved]
  - Therapeutic product effect incomplete [Unknown]
  - Pain in extremity [Unknown]
  - Surgical failure [Unknown]
  - General physical health deterioration [Unknown]
  - Alopecia [Recovered/Resolved]
  - Nail growth abnormal [Recovered/Resolved]
  - Onychoclasis [Recovered/Resolved]
  - Tinnitus [Unknown]
